FAERS Safety Report 19606552 (Version 3)
Quarter: 2021Q3

REPORT INFORMATION
  Report Type: Spontaneous
  Country: RU (occurrence: RU)
  Receive Date: 20210725
  Receipt Date: 20210810
  Transmission Date: 20211014
  Serious: Yes (Other)
  Sender: FDA-Public Use
  Company Number: NVSC2021RU164965

PATIENT
  Age: 34 Year
  Sex: Male

DRUGS (1)
  1. TOBRADEX [Suspect]
     Active Substance: DEXAMETHASONE\TOBRAMYCIN
     Indication: PRODUCT USED FOR UNKNOWN INDICATION
     Dosage: 1?2 DROPS, 4?5 TIMES PER DAY
     Route: 065

REACTIONS (4)
  - Corneal epithelium defect [Recovered/Resolved]
  - Corneal opacity [Recovered/Resolved]
  - Keratitis [Recovered/Resolved]
  - Drug ineffective [Unknown]
